FAERS Safety Report 9283684 (Version 1)
Quarter: 2013Q2

REPORT INFORMATION
  Report Type: Spontaneous
  Country: US (occurrence: US)
  Receive Date: 20130510
  Receipt Date: 20130510
  Transmission Date: 20140414
  Serious: Yes (Death, Hospitalization)
  Sender: FDA-Public Use
  Company Number: US-GLAXOSMITHKLINE-A1022662A

PATIENT
  Age: 71 Year
  Sex: Male

DRUGS (3)
  1. ADVAIR [Suspect]
     Indication: ASTHMA
     Dosage: 1PUFF TWICE PER DAY
     Route: 055
  2. CONCURRENT MEDICATIONS [Concomitant]
  3. BLOOD THINNER [Concomitant]

REACTIONS (1)
  - Pneumonia [Fatal]
